FAERS Safety Report 20108910 (Version 1)
Quarter: 2021Q4

REPORT INFORMATION
  Report Type: Spontaneous
  Country: US (occurrence: US)
  Receive Date: 20211124
  Receipt Date: 20211124
  Transmission Date: 20220303
  Serious: Yes (Other)
  Sender: FDA-Public Use
  Company Number: US-PFIZER INC-202101565263

PATIENT
  Age: 87 Year
  Sex: Male

DRUGS (1)
  1. VYNDAMAX [Suspect]
     Active Substance: TAFAMIDIS
     Dosage: 61 MG

REACTIONS (22)
  - Atrial fibrillation [Unknown]
  - Cardiac amyloidosis [Unknown]
  - Essential hypertension [Unknown]
  - Coronary artery disease [Unknown]
  - Atrioventricular block [Unknown]
  - Cardiovascular disorder [Unknown]
  - Type V hyperlipidaemia [Unknown]
  - Prostatomegaly [Unknown]
  - Cough [Unknown]
  - Dysphagia [Unknown]
  - Cardiac disorder [Unknown]
  - Nocturia [Unknown]
  - Tinnitus [Unknown]
  - Gastrooesophageal reflux disease [Unknown]
  - Large intestine polyp [Unknown]
  - Osteoarthritis [Unknown]
  - Adrenal adenoma [Unknown]
  - Sunburn [Unknown]
  - Irritable bowel syndrome [Unknown]
  - Inguinal hernia [Unknown]
  - Diarrhoea [Unknown]
  - Melanocytic naevus [Unknown]
